FAERS Safety Report 13263758 (Version 4)
Quarter: 2017Q2

REPORT INFORMATION
  Report Type: Spontaneous
  Country: US (occurrence: US)
  Receive Date: 20170223
  Receipt Date: 20170508
  Transmission Date: 20170830
  Serious: Yes (Hospitalization)
  Sender: FDA-Public Use
  Company Number: US-PFIZER INC-2017070841

PATIENT
  Age: 85 Year
  Sex: Female
  Weight: 67.12 kg

DRUGS (4)
  1. IBRANCE [Suspect]
     Active Substance: PALBOCICLIB
     Indication: BREAST CANCER
     Dosage: 100 MG, CYCLIC (DAYS 1-21 Q28 DAYS)
     Route: 048
  2. IBRANCE [Suspect]
     Active Substance: PALBOCICLIB
     Dosage: 100 MG, CYCLIC (1 CAPSULE DAILY, 1-21 DAYS)
     Route: 048
     Dates: start: 20170131
  3. IBRANCE [Suspect]
     Active Substance: PALBOCICLIB
     Indication: BREAST CANCER METASTATIC
     Dosage: 100 MG, CYCLIC (DAYS 1-21 Q28 DAYS)
     Route: 048
     Dates: start: 20170131
  4. IBRANCE [Suspect]
     Active Substance: PALBOCICLIB
     Dosage: 100 MG, CYCLIC (1CAPSULE DAILY 1-21/DAYS)(18 CAPSULES OF HER 21 CYCLE)
     Route: 048
     Dates: start: 20170131

REACTIONS (10)
  - Nausea [Unknown]
  - Prothrombin time prolonged [Unknown]
  - Fatigue [Unknown]
  - White blood cell count decreased [Unknown]
  - Vomiting [Unknown]
  - Haemoglobin decreased [Unknown]
  - Eating disorder [Unknown]
  - Diarrhoea [Unknown]
  - Gingival bleeding [Unknown]
  - International normalised ratio increased [Unknown]
